FAERS Safety Report 12973296 (Version 2)
Quarter: 2016Q4

REPORT INFORMATION
  Report Type: Spontaneous
  Country: US (occurrence: US)
  Receive Date: 20161124
  Receipt Date: 20161213
  Transmission Date: 20170207
  Serious: Yes (Hospitalization, Other)
  Sender: FDA-Public Use
  Company Number: US-ALEXION PHARMACEUTICALS INC-A201609054

PATIENT
  Sex: Male

DRUGS (1)
  1. SOLIRIS [Suspect]
     Active Substance: ECULIZUMAB
     Indication: PAROXYSMAL NOCTURNAL HAEMOGLOBINURIA
     Dosage: 900 MG, UNK
     Route: 042

REACTIONS (7)
  - Joint hyperextension [Unknown]
  - Red blood cell count decreased [Unknown]
  - Haemarthrosis [Unknown]
  - Hypotension [Unknown]
  - Hypertension [Unknown]
  - Haemoglobin decreased [Unknown]
  - Dehydration [Unknown]
